FAERS Safety Report 23263182 (Version 1)
Quarter: 2023Q4

REPORT INFORMATION
  Report Type: Spontaneous
  Country: US (occurrence: US)
  Receive Date: 20231205
  Receipt Date: 20231205
  Transmission Date: 20240110
  Serious: No
  Sender: FDA-Public Use
  Company Number: US-HALOZYME THERAPEUTICS, INC.-2023-US-TX -02626

PATIENT

DRUGS (2)
  1. XYOSTED [Suspect]
     Active Substance: TESTOSTERONE ENANTHATE
     Indication: Product used for unknown indication
     Dosage: 100 MILLIGRAM
     Route: 058
     Dates: start: 202301, end: 202306
  2. XYOSTED [Suspect]
     Active Substance: TESTOSTERONE ENANTHATE
     Dosage: 100 MILLIGRAM, 2X/WK
     Route: 058
     Dates: start: 202306

REACTIONS (2)
  - Off label use [None]
  - Therapeutic response unexpected [None]

NARRATIVE: CASE EVENT DATE: 20230601
